FAERS Safety Report 4925012-0 (Version None)
Quarter: 2006Q1

REPORT INFORMATION
  Report Type: 
  Country: None (occurrence: None)
  Receive Date: 20060222
  Receipt Date: 20060213
  Transmission Date: 20060701
  Serious: Yes (Death, Other)
  Sender: FDA-Public Use
  Company Number: 2005BI019491

PATIENT
  Age: 63 Year
  Sex: Female

DRUGS (1)
  1. AVONEX [Suspect]
     Indication: MULTIPLE SCLEROSIS
     Dosage: IM
     Route: 030
     Dates: end: 20040101

REACTIONS (10)
  - AORTIC VALVE REPLACEMENT [None]
  - CARDIAC FAILURE CONGESTIVE [None]
  - CEREBROVASCULAR ACCIDENT [None]
  - HEART VALVE REPLACEMENT [None]
  - INFLUENZA LIKE ILLNESS [None]
  - MALAISE [None]
  - MITRAL VALVE REPLACEMENT [None]
  - NEOPLASM MALIGNANT [None]
  - PULMONARY OEDEMA [None]
  - SURGERY [None]
